FAERS Safety Report 17870543 (Version 2)
Quarter: 2021Q2

REPORT INFORMATION
  Report Type: Spontaneous
  Country: US (occurrence: US)
  Receive Date: 20200608
  Receipt Date: 20210601
  Transmission Date: 20210717
  Serious: Yes (Other)
  Sender: FDA-Public Use
  Company Number: US-PFIZER INC-2020222187

PATIENT
  Age: 64 Year
  Sex: Female

DRUGS (1)
  1. IBRANCE [Suspect]
     Active Substance: PALBOCICLIB
     Dosage: UNK
     Dates: start: 20190115

REACTIONS (5)
  - Wound infection [Unknown]
  - Pyrexia [Unknown]
  - Second primary malignancy [Unknown]
  - Lung neoplasm malignant [Unknown]
  - Scratch [Unknown]
